FAERS Safety Report 5519525-0 (Version None)
Quarter: 2007Q4

REPORT INFORMATION
  Report Type: 
  Country: None (occurrence: None)
  Receive Date: 20071116
  Receipt Date: 20071113
  Transmission Date: 20080405
  Serious: Yes (Death)
  Sender: FDA-Public Use
  Company Number: A0694224A

PATIENT
  Age: 23 Year
  Sex: Female

DRUGS (6)
  1. LAMICTAL [Suspect]
     Indication: PERSONALITY DISORDER
     Dosage: 150MG UNKNOWN
     Route: 048
     Dates: start: 20061101, end: 20070912
  2. ABILIFY [Suspect]
     Indication: DRUG USE FOR UNKNOWN INDICATION
     Route: 065
  3. MINOCYCLINE HCL [Concomitant]
  4. BIRTH CONTROL PILL [Concomitant]
     Route: 048
  5. TOPAMAX [Concomitant]
  6. EFFEXOR [Concomitant]

REACTIONS (2)
  - COMPLETED SUICIDE [None]
  - DEPRESSION [None]
